FAERS Safety Report 23710180 (Version 1)
Quarter: 2024Q2

REPORT INFORMATION
  Report Type: Spontaneous
  Country: US (occurrence: US)
  Receive Date: 20240405
  Receipt Date: 20240405
  Transmission Date: 20240715
  Serious: No
  Sender: FDA-Public Use
  Company Number: US-AYTU BIOPHARMA, INC.-2023AYT000038

PATIENT

DRUGS (2)
  1. ADZENYS XR-ODT [Suspect]
     Active Substance: AMPHETAMINE
     Indication: Product used for unknown indication
     Dosage: 15.7 MILLIGRAM
     Route: 048
     Dates: end: 202303
  2. ADZENYS XR-ODT [Suspect]
     Active Substance: AMPHETAMINE
     Dosage: 18.8 MILLIGRAM
     Route: 048
     Dates: start: 20230821

REACTIONS (2)
  - Abdominal distension [Not Recovered/Not Resolved]
  - Dizziness [Not Recovered/Not Resolved]
